FAERS Safety Report 19828027 (Version 1)
Quarter: 2021Q3

REPORT INFORMATION
  Report Type: Spontaneous
  Country: CA (occurrence: CA)
  Receive Date: 20210914
  Receipt Date: 20210914
  Transmission Date: 20211014
  Serious: Yes (Other)
  Sender: FDA-Public Use
  Company Number: CA-ORION CORPORATION ORION PHARMA-21_00015792

PATIENT
  Age: 67 Year
  Sex: Male

DRUGS (2)
  1. METHOTREXATE (TRADE NAME UNKNOWN) [Suspect]
     Active Substance: METHOTREXATE
     Indication: PRODUCT USED FOR UNKNOWN INDICATION
     Route: 048
  2. METHOTREXATE (TRADE NAME UNKNOWN) [Suspect]
     Active Substance: METHOTREXATE
     Dosage: 15 MG FOR OVER 65 YEARS MINIMUM 8 WEEKS REQUIRED: 3 YEARS (PENDING CLARIFICATION)
     Route: 051

REACTIONS (5)
  - Inflammation [Unknown]
  - Rheumatoid arthritis [Unknown]
  - Pain [Unknown]
  - Therapeutic response decreased [Unknown]
  - Musculoskeletal stiffness [Unknown]
